FAERS Safety Report 4299214-3 (Version None)
Quarter: 2004Q1

REPORT INFORMATION
  Report Type: 
  Country: None (occurrence: None)
  Receive Date: 20040217
  Receipt Date: 20040203
  Transmission Date: 20041129
  Serious: Yes (Life-Threatening, Hospitalization, Disabling)
  Sender: FDA-Public Use
  Company Number: PRIUSA2000013480

PATIENT
  Age: 29 Year
  Sex: Female
  Weight: 40 kg

DRUGS (7)
  1. REMICADE [Suspect]
     Indication: CROHN'S DISEASE
     Dosage: SEE IMAGE
     Route: 041
     Dates: start: 19990801, end: 19990801
  2. REMICADE [Suspect]
     Indication: CROHN'S DISEASE
     Dosage: SEE IMAGE
     Route: 041
     Dates: start: 19990810, end: 19990810
  3. REMICADE [Suspect]
     Indication: CROHN'S DISEASE
     Dosage: SEE IMAGE
     Route: 041
     Dates: start: 20000803, end: 20000803
  4. AZATHIOPRINE (AZATHIOPRINE) TABLETS [Suspect]
     Indication: CROHN'S DISEASE
     Dosage: 2 DOSE (S), 1 IN 1 DAY, ORAL
     Route: 048
  5. PREDNISONE [Concomitant]
  6. 5-ASA (MESALAZINE) TABLETS [Concomitant]
  7. PENTASA [Concomitant]

REACTIONS (22)
  - ANAL STENOSIS [None]
  - CACHEXIA [None]
  - CANDIDA SEPSIS [None]
  - CEREBELLAR SYNDROME [None]
  - CONDITION AGGRAVATED [None]
  - CROHN'S DISEASE [None]
  - DEAFNESS UNILATERAL [None]
  - DEMYELINATION [None]
  - DYSPHAGIA [None]
  - ENCEPHALITIS [None]
  - HAEMOGLOBIN DECREASED [None]
  - HEMIPARESIS [None]
  - HEPATOSPLENOMEGALY [None]
  - HISTIOCYTOSIS HAEMATOPHAGIC [None]
  - INFLAMMATION [None]
  - INTESTINAL OBSTRUCTION [None]
  - KYPHOSIS [None]
  - LARYNGEAL DISORDER [None]
  - PARALYSIS [None]
  - POST PROCEDURAL COMPLICATION [None]
  - RESPIRATORY DISORDER [None]
  - SEPTIC SHOCK [None]
